FAERS Safety Report 22227202 (Version 1)
Quarter: 2023Q2

REPORT INFORMATION
  Report Type: Report from Study
  Country: US (occurrence: US)
  Receive Date: 20230419
  Receipt Date: 20230419
  Transmission Date: 20230722
  Serious: Yes (Death)
  Sender: FDA-Public Use
  Company Number: US-ABBVIE-4733943

PATIENT
  Age: 75 Year
  Sex: Male

DRUGS (1)
  1. SYNTHROID [Suspect]
     Active Substance: LEVOTHYROXINE SODIUM
     Indication: Hypothyroidism
     Dosage: FORM STRENGTH: 200 MICROGRAM
     Route: 048

REACTIONS (6)
  - Myocardial infarction [Fatal]
  - Peptic ulcer [Unknown]
  - Hypercholesterolaemia [Unknown]
  - Cardiac disorder [Unknown]
  - Diabetes mellitus [Unknown]
  - Liver disorder [Unknown]

NARRATIVE: CASE EVENT DATE: 20230415
